FAERS Safety Report 20632220 (Version 1)
Quarter: 2022Q1

REPORT INFORMATION
  Report Type: Spontaneous
  Country: RO (occurrence: RO)
  Receive Date: 20220324
  Receipt Date: 20220324
  Transmission Date: 20220423
  Serious: Yes (Other)
  Sender: FDA-Public Use
  Company Number: RO-AMGEN-ROUSP2022048211

PATIENT
  Age: 64 Year
  Sex: Female

DRUGS (2)
  1. PROLIA [Suspect]
     Active Substance: DENOSUMAB
     Indication: Osteoporosis
     Dosage: UNK UNK, Q6MO
     Route: 065
     Dates: start: 2017
  2. CALCIFEDIOL ANHYDROUS [Concomitant]
     Active Substance: CALCIFEDIOL ANHYDROUS
     Dosage: 1000 IU

REACTIONS (2)
  - Adrenal neoplasm [Unknown]
  - Cortisol increased [Unknown]

NARRATIVE: CASE EVENT DATE: 20200101
